FAERS Safety Report 18429153 (Version 14)
Quarter: 2021Q1

REPORT INFORMATION
  Report Type: Report from Study
  Country: JP (occurrence: JP)
  Receive Date: 20201026
  Receipt Date: 20210224
  Transmission Date: 20210419
  Serious: Yes (Hospitalization)
  Sender: FDA-Public Use
  Company Number: JP-EISAI MEDICAL RESEARCH-EC-2020-082627

PATIENT
  Age: 83 Year
  Sex: Female
  Weight: 38 kg

DRUGS (22)
  1. LENVATINIB [Suspect]
     Active Substance: LENVATINIB
     Indication: TRANSITIONAL CELL CARCINOMA
     Route: 048
     Dates: start: 20200930, end: 20201014
  2. SOLDEM 3A [Concomitant]
     Active Substance: CARBOHYDRATES\POTASSIUM CHLORIDE\SODIUM CHLORIDE\SODIUM LACTATE
     Route: 042
     Dates: start: 20200912, end: 20201008
  3. BFLUID [Concomitant]
     Active Substance: AMINO ACIDS\DEXTROSE\ELECTROLYTES NOS\VITAMINS
     Route: 042
     Dates: start: 20200918, end: 20201005
  4. FENTOS [Concomitant]
     Active Substance: FENTANYL
     Dates: start: 20201006
  5. NEW LECICARBON [Concomitant]
     Active Substance: SODIUM BICARBONATE\SODIUM PHOSPHATE, MONOBASIC
     Dates: start: 20200925, end: 20200929
  6. AMLODIPINE [Concomitant]
     Active Substance: AMLODIPINE BESYLATE
     Dates: start: 20201006, end: 20201017
  7. PEMBROLIZUMAB. [Suspect]
     Active Substance: PEMBROLIZUMAB
     Indication: TRANSITIONAL CELL CARCINOMA
     Route: 041
     Dates: start: 20200930, end: 20200930
  8. VEEN D [Concomitant]
     Active Substance: CALCIUM CHLORIDE\DEXTROSE\POTASSIUM CHLORIDE\SODIUM ACETATE\SODIUM CHLORIDE
     Route: 042
     Dates: start: 20200912, end: 20201104
  9. PREDONINE [Concomitant]
     Active Substance: PREDNISOLONE
     Dates: start: 20200924
  10. MAGNESIUM OXIDE. [Concomitant]
     Active Substance: MAGNESIUM OXIDE
     Dates: start: 20200917, end: 20201015
  11. NARURAPID [Concomitant]
     Active Substance: HYDROMORPHONE HYDROCHLORIDE
     Dates: start: 20201009
  12. MOHRUS PAP [Concomitant]
     Dates: start: 20201007, end: 20201007
  13. MOSAPRIDE CITRATE [Concomitant]
     Active Substance: MOSAPRIDE CITRATE
     Dates: start: 20200914, end: 20201017
  14. LINZESS [Concomitant]
     Active Substance: LINACLOTIDE
     Dates: start: 20200914, end: 20201017
  15. VITAMEDIN INTRAVENOUS [Concomitant]
     Active Substance: CYANOCOBALAMIN\PYRIDOXINE HYDROCHLORIDE\THIAMINE
     Dates: start: 20201009, end: 20201012
  16. TRAMAL [Concomitant]
     Active Substance: TRAMADOL
     Dates: start: 20200921, end: 20201006
  17. GOOFICE [Concomitant]
     Active Substance: ELOBIXIBAT
     Dates: start: 20200929, end: 20201014
  18. TAKECAB [Concomitant]
     Active Substance: VONOPRAZAN FUMARATE
     Dates: start: 20200918
  19. OTSUKA NORMAL SALINE [Concomitant]
     Route: 042
     Dates: start: 20201005, end: 20201012
  20. TRAMAL [Concomitant]
     Active Substance: TRAMADOL
     Dates: start: 20200925, end: 20201005
  21. METOCLOPRAMIDE HYDROCHLORIDE. [Concomitant]
     Active Substance: METOCLOPRAMIDE HYDROCHLORIDE
     Route: 042
     Dates: start: 20201010, end: 20201014
  22. CALONAL [Concomitant]
     Active Substance: ACETAMINOPHEN
     Dates: start: 20200913, end: 20201017

REACTIONS (1)
  - Metabolic encephalopathy [Recovered/Resolved with Sequelae]

NARRATIVE: CASE EVENT DATE: 20201013
